FAERS Safety Report 9223632 (Version 6)
Quarter: 2016Q3

REPORT INFORMATION
  Report Type: Spontaneous
  Country: JP (occurrence: JP)
  Receive Date: 20130410
  Receipt Date: 20160830
  Transmission Date: 20161109
  Serious: Yes (Hospitalization, Other)
  Sender: FDA-Public Use
  Company Number: JP-GLAXOSMITHKLINE-B0881228A

PATIENT
  Age: 31 Year
  Sex: Female

DRUGS (10)
  1. LAMOTRIGINE. [Suspect]
     Active Substance: LAMOTRIGINE
     Indication: AFFECT LABILITY
     Route: 048
     Dates: start: 20120117
  2. VEGETAMIN-B [Concomitant]
     Active Substance: CHLORPROMAZINE HYDROCHLORIDE\PHENOBARBITAL\PROMETHAZINE
     Indication: INSOMNIA
     Route: 048
  3. FLUNITRAZEPAM [Concomitant]
     Active Substance: FLUNITRAZEPAM
     Indication: INSOMNIA
     Route: 048
  4. LAMOTRIGINE. [Suspect]
     Active Substance: LAMOTRIGINE
     Indication: AFFECT LABILITY
     Route: 048
  5. PAROXETINE HYDROCHLORIDE. [Suspect]
     Active Substance: PAROXETINE HYDROCHLORIDE
     Indication: AUTONOMIC NERVOUS SYSTEM IMBALANCE
     Route: 048
     Dates: start: 200704
  6. PHENOBAL [Concomitant]
     Active Substance: PHENOBARBITAL
     Route: 048
  7. LIMAS [Concomitant]
     Active Substance: LITHIUM CARBONATE
     Indication: AFFECT LABILITY
     Route: 048
  8. JZOLOFT [Concomitant]
     Active Substance: SERTRALINE HYDROCHLORIDE
     Indication: DEPRESSION
     Route: 048
  9. ROHYPNOL [Concomitant]
     Active Substance: FLUNITRAZEPAM
     Route: 065
  10. SOLANAX [Concomitant]
     Active Substance: ALPRAZOLAM
     Indication: ANXIETY
     Route: 048

REACTIONS (7)
  - Suicidal ideation [Unknown]
  - Overdose [Unknown]
  - Insomnia [Unknown]
  - Stress [Unknown]
  - Coma [Recovered/Resolved]
  - Depressive symptom [Unknown]
  - Affect lability [Unknown]

NARRATIVE: CASE EVENT DATE: 20130402
